FAERS Safety Report 19932408 (Version 1)
Quarter: 2021Q4

REPORT INFORMATION
  Report Type: Spontaneous
  Country: CA (occurrence: CA)
  Receive Date: 20211008
  Receipt Date: 20211008
  Transmission Date: 20220303
  Serious: Yes (Other)
  Sender: FDA-Public Use
  Company Number: CA-TEVA-2021-CA-1961879

PATIENT
  Age: 35 Year
  Sex: Male

DRUGS (1)
  1. METHOTREXATE [Suspect]
     Active Substance: METHOTREXATE
     Indication: Immunosuppression
     Route: 065

REACTIONS (12)
  - Abdominal pain lower [Unknown]
  - Abscess [Unknown]
  - Aphthous ulcer [Unknown]
  - Arthralgia [Unknown]
  - Colon adenoma [Unknown]
  - Condition aggravated [Unknown]
  - Diarrhoea [Unknown]
  - Intestinal stenosis [Unknown]
  - Pain [Unknown]
  - Pseudopolyposis [Unknown]
  - Scar [Unknown]
  - Terminal ileitis [Unknown]
